FAERS Safety Report 10929058 (Version 1)
Quarter: 2015Q1

REPORT INFORMATION
  Report Type: Spontaneous
  Country: US (occurrence: None)
  Receive Date: 20150317
  Receipt Date: 20150317
  Transmission Date: 20150721
  Serious: No
  Sender: FDA-Public Use
  Company Number: None

PATIENT
  Age: 29 Year
  Sex: Female
  Weight: 96.8 kg

DRUGS (1)
  1. MAKENA [Suspect]
     Active Substance: HYDROXYPROGESTERONE CAPROATE
     Indication: PREGNANCY
     Route: 030
     Dates: start: 20150306, end: 20150313

REACTIONS (6)
  - Hypoaesthesia [None]
  - Miosis [None]
  - Bedridden [None]
  - Confusional state [None]
  - Paralysis [None]
  - Flat affect [None]

NARRATIVE: CASE EVENT DATE: 20150313
